FAERS Safety Report 19308708 (Version 2)
Quarter: 2021Q3

REPORT INFORMATION
  Report Type: Spontaneous
  Country: AU (occurrence: AU)
  Receive Date: 20210526
  Receipt Date: 20210714
  Transmission Date: 20211014
  Serious: No
  Sender: FDA-Public Use
  Company Number: AU-JNJFOC-20210541540

PATIENT

DRUGS (3)
  1. DUROGESIC [Suspect]
     Active Substance: FENTANYL
  2. DUROGESIC [Suspect]
     Active Substance: FENTANYL
     Indication: PRODUCT USED FOR UNKNOWN INDICATION
     Dosage: STRENGTH: 25.00 MCG/HR
     Route: 062
  3. DUROGESIC [Suspect]
     Active Substance: FENTANYL

REACTIONS (2)
  - Product adhesion issue [Unknown]
  - Underdose [Unknown]
